FAERS Safety Report 6998826-3 (Version None)
Quarter: 2010Q3

REPORT INFORMATION
  Report Type: 
  Country: None (occurrence: None)
  Receive Date: 20100920
  Receipt Date: 20070531
  Transmission Date: 20110219
  Serious: Yes (Hospitalization, Other)
  Sender: FDA-Public Use
  Company Number: US-ASTRAZENECA-2006UW27455

PATIENT
  Age: 11763 Day
  Sex: Female
  Weight: 146.5 kg

DRUGS (25)
  1. SEROQUEL [Suspect]
     Indication: HALLUCINATION
     Dosage: 75 MG - 300 MG
     Route: 048
     Dates: start: 20010911
  2. SEROQUEL [Suspect]
     Indication: HALLUCINATION, AUDITORY
     Dosage: 75 MG - 300 MG
     Route: 048
     Dates: start: 20010911
  3. SEROQUEL [Suspect]
     Indication: ANXIETY
     Dosage: 75 MG - 300 MG
     Route: 048
     Dates: start: 20010911
  4. DIVALPROEX SODIUM [Concomitant]
     Dates: start: 20030829
  5. RITALIN/ CONCERTA [Concomitant]
     Dosage: 10 MG - 72 MG
     Dates: start: 19981031
  6. ZOLOFT [Concomitant]
     Dosage: 100 MG - 200 MG
     Dates: start: 20011107
  7. VALIUM [Concomitant]
     Dates: start: 20011107
  8. HALDOL [Concomitant]
     Dosage: 5 MG - 10 MG
     Dates: start: 20010919
  9. HALDOL [Concomitant]
     Dates: start: 20030101
  10. CLONIDINE [Concomitant]
     Dates: start: 20011107
  11. TRAZODONE HCL [Concomitant]
     Indication: SLEEP DISORDER
     Dosage: 100 MG - 150 MG
     Dates: start: 20000517
  12. WELLBUTRIN SR [Concomitant]
     Dates: start: 20041110
  13. RISPERDAL [Concomitant]
     Dosage: 5 MG - 8 MG
     Dates: start: 20041110
  14. NAPROXEN [Concomitant]
     Dates: start: 20060726
  15. LITHIUM CARBONATE SR [Concomitant]
     Dosage: 600 MG - 750 MG
     Dates: start: 20060726
  16. CLOZARIL [Concomitant]
     Dosage: 100 MG - 400 MG
     Dates: start: 20051019
  17. CLOZARIL [Concomitant]
     Dates: start: 20050101
  18. ZOCOR [Concomitant]
     Dates: start: 20060726
  19. DOCUSATE SODIUM [Concomitant]
     Dates: start: 20060726
  20. KLONOPIN [Concomitant]
     Dosage: 1 MG - 2 MG
     Dates: start: 19981031
  21. PROZAC [Concomitant]
     Dates: start: 20050101
  22. PROZAC [Concomitant]
     Dosage: 20 MG - 30 MG
     Dates: start: 20060726
  23. ATIVAN [Concomitant]
     Indication: ANXIETY
     Dosage: 0.5 MG - 2 MG
     Route: 048
     Dates: start: 20010911
  24. ATIVAN [Concomitant]
     Indication: AGITATION
     Dosage: 0.5 MG - 2 MG
     Route: 048
     Dates: start: 20010911
  25. ATIVAN [Concomitant]
     Indication: AGGRESSION
     Dosage: 0.5 MG - 2 MG
     Route: 048
     Dates: start: 20010911

REACTIONS (6)
  - DIABETES MELLITUS [None]
  - HYPOKALAEMIA [None]
  - HYPOTENSION [None]
  - METABOLIC SYNDROME [None]
  - OVERDOSE [None]
  - TYPE 2 DIABETES MELLITUS [None]
